FAERS Safety Report 9962499 (Version 1)
Quarter: 2014Q1

REPORT INFORMATION
  Report Type: Report from Study
  Country: US (occurrence: US)
  Receive Date: 20140305
  Receipt Date: 20140305
  Transmission Date: 20141002
  Serious: No
  Sender: FDA-Public Use
  Company Number: US-ABBVIE-13P-163-1115441-00

PATIENT
  Age: 29 Year
  Sex: Male

DRUGS (2)
  1. HUMIRA [Suspect]
     Indication: COLITIS ULCERATIVE
     Dates: start: 201305
  2. LIALDA [Concomitant]
     Indication: COLITIS

REACTIONS (5)
  - Economic problem [Unknown]
  - Dry mouth [Not Recovered/Not Resolved]
  - Pruritus generalised [Recovering/Resolving]
  - Clostridium difficile infection [Not Recovered/Not Resolved]
  - Oral fungal infection [Unknown]
